FAERS Safety Report 5382188-1 (Version None)
Quarter: 2007Q3

REPORT INFORMATION
  Report Type: 
  Country: None (occurrence: None)
  Receive Date: 20070709
  Receipt Date: 20070626
  Transmission Date: 20080115
  Serious: Yes (Other)
  Sender: FDA-Public Use
  Company Number: US-ELI_LILLY_AND_COMPANY-US200705004956

PATIENT
  Age: 62 Year
  Sex: Male

DRUGS (4)
  1. CYMBALTA [Suspect]
     Indication: MAJOR DEPRESSION
     Dosage: 60 MG, UNK
     Dates: start: 20070101, end: 20070301
  2. PREVACID [Concomitant]
     Dosage: 30 MG, UNK
     Dates: start: 20070405
  3. FLEXERIL [Concomitant]
     Dosage: 10 MG, UNK
     Dates: start: 20060705
  4. ZETIA [Concomitant]
     Dosage: 10 MG, UNK
     Dates: start: 20060420

REACTIONS (3)
  - ALANINE AMINOTRANSFERASE INCREASED [None]
  - ASPARTATE AMINOTRANSFERASE INCREASED [None]
  - GASTRIC CANCER [None]
